FAERS Safety Report 8679594 (Version 3)
Quarter: 2012Q4

REPORT INFORMATION
  Report Type: 
  Country: JP (occurrence: JP)
  Receive Date: 20120724
  Receipt Date: 20121011
  Transmission Date: 20130627
  Serious: Yes (Death, Life-Threatening, Hospitalization)
  Sender: FDA-Public Use
  Company Number: JP-AMGEN-JPNCT2012045322

PATIENT
  Age: 99 Year
  Sex: Female

DRUGS (11)
  1. DARBEPOETIN ALFA [Suspect]
     Indication: NEPHROGENIC ANAEMIA
     Dosage: 30 mug, qd
     Route: 058
     Dates: start: 20110722, end: 20110722
  2. DARBEPOETIN ALFA [Suspect]
     Dosage: 30 mug, q2wk
     Route: 058
     Dates: start: 20110902, end: 20110930
  3. DARBEPOETIN ALFA [Suspect]
     Dosage: 30 mug, q2wk
     Route: 058
     Dates: start: 20120203, end: 20120427
  4. DARBEPOETIN ALFA [Suspect]
     Dosage: 30 mug, qd
     Route: 058
     Dates: start: 20120518, end: 20120518
  5. DARBEPOETIN ALFA [Suspect]
     Dosage: 30 mug, qd
     Route: 058
     Dates: start: 20120629, end: 20120629
  6. FUROSEMIDE [Concomitant]
     Indication: RENAL DISORDER
     Dosage: UNK
     Route: 048
  7. SPIRONOLACTONE [Concomitant]
     Indication: RENAL DISORDER
     Dosage: UNK
     Route: 048
  8. MYSLEE [Concomitant]
     Dosage: UNK
     Route: 048
  9. MEVALOTIN [Concomitant]
     Dosage: UNK
     Route: 048
  10. SENNARIDE [Concomitant]
     Dosage: UNK
     Route: 048
  11. ALLORIN [Concomitant]
     Dosage: UNK
     Route: 048

REACTIONS (1)
  - Cerebral infarction [Fatal]
